FAERS Safety Report 18377747 (Version 1)
Quarter: 2020Q4

REPORT INFORMATION
  Report Type: Spontaneous
  Country: JP (occurrence: JP)
  Receive Date: 20201013
  Receipt Date: 20201013
  Transmission Date: 20210114
  Serious: Yes (Life-Threatening, Hospitalization)
  Sender: FDA-Public Use
  Company Number: JP-STRIDES ARCOLAB LIMITED-2020SP012108

PATIENT
  Age: 45 Year
  Sex: Male

DRUGS (13)
  1. IDARUBICIN [Suspect]
     Active Substance: IDARUBICIN
     Indication: MARROW HYPERPLASIA
  2. AMIKACIN. [Suspect]
     Active Substance: AMIKACIN
     Indication: PNEUMONIA PSEUDOMONAL
     Dosage: UNK
     Route: 065
  3. CYTOSINE ARABINOSIDE [Suspect]
     Active Substance: CYTARABINE
     Indication: MYELOFIBROSIS
  4. IDARUBICIN [Suspect]
     Active Substance: IDARUBICIN
     Indication: MYELOFIBROSIS
  5. MEROPENEM. [Suspect]
     Active Substance: MEROPENEM
     Indication: PNEUMONIA PSEUDOMONAL
  6. CEFOZOPRAN [Suspect]
     Active Substance: CEFOZOPRAN
     Indication: FEBRILE NEUTROPENIA
  7. CYTOSINE ARABINOSIDE [Suspect]
     Active Substance: CYTARABINE
     Indication: MARROW HYPERPLASIA
     Dosage: 2000 MILLIGRAM/SQ. METER, BID
     Route: 065
  8. CEFOZOPRAN [Suspect]
     Active Substance: CEFOZOPRAN
     Indication: CELLULITIS
     Dosage: UNK
     Route: 065
  9. LEVOFLOXACIN. [Suspect]
     Active Substance: LEVOFLOXACIN
     Indication: CELLULITIS
     Dosage: UNK, ON DAY 38
     Route: 065
  10. MEROPENEM. [Suspect]
     Active Substance: MEROPENEM
     Indication: CELLULITIS
     Dosage: UNK, ON DAY 29
     Route: 065
  11. IDARUBICIN [Suspect]
     Active Substance: IDARUBICIN
     Indication: ACUTE MYELOID LEUKAEMIA
     Dosage: 12 MILLIGRAM/SQ. METER
     Route: 065
  12. VANCOMYCIN [Suspect]
     Active Substance: VANCOMYCIN
     Indication: CELLULITIS
     Dosage: UNK
     Route: 065
  13. CYTOSINE ARABINOSIDE [Suspect]
     Active Substance: CYTARABINE
     Indication: ACUTE MYELOID LEUKAEMIA
     Dosage: 100 MILLIGRAM/SQ. METER, QD
     Route: 065

REACTIONS (4)
  - Haemorrhagic pneumonia [Recovered/Resolved]
  - Acute respiratory distress syndrome [Recovered/Resolved]
  - Stenotrophomonas infection [Recovered/Resolved]
  - Lung infiltration [Recovered/Resolved]
